FAERS Safety Report 17754265 (Version 1)
Quarter: 2020Q2

REPORT INFORMATION
  Report Type: Spontaneous
  Country: ES (occurrence: ES)
  Receive Date: 20200507
  Receipt Date: 20200507
  Transmission Date: 20200714
  Serious: Yes (Other)
  Sender: FDA-Public Use
  Company Number: ES-TEVA-2020-ES-1230788

PATIENT
  Age: 71 Year
  Sex: Male

DRUGS (8)
  1. GANFORT 0,3 MG/ML +5 MG/ML COLIRIO EN SOLUCION , 1 FRASCO DE 3 ML [Concomitant]
  2. PARAPRES PLUS 16 MG/12,5 MG COMPRIMIDOS, 28 COMPRIMIDOS [Concomitant]
  3. PARACETAMOL 650 MG 40 COMPRIMIDOS [Concomitant]
  4. TOBRADEX COLIRIO, 1 FRASCO DE 5 ML [Concomitant]
  5. ARTEOPTIC 1% COLIRIO DE LIBERACION PROLONGADA , 1 FRASCO DE 3 ML [Concomitant]
  6. IBUPROFENO (1769A) [Suspect]
     Active Substance: IBUPROFEN
     Indication: SELF-MEDICATION
     Dosage: 1 DOSAGE FORMS
     Route: 048
     Dates: start: 20200414, end: 20200414
  7. AZOPT 10 MG/ML COLIRIO EN SUSPENSION, 1 FRASCO DE 5 ML [Concomitant]
  8. SIMVASTATINA 20 MG 28 COMPRIMIDOS [Concomitant]
     Active Substance: SIMVASTATIN

REACTIONS (3)
  - Erythema [Recovering/Resolving]
  - Angioedema [Recovering/Resolving]
  - Urticaria [Recovering/Resolving]

NARRATIVE: CASE EVENT DATE: 20200414
